FAERS Safety Report 22377320 (Version 2)
Quarter: 2023Q2

REPORT INFORMATION
  Report Type: Report from Study
  Country: US (occurrence: US)
  Receive Date: 20230529
  Receipt Date: 20230623
  Transmission Date: 20230722
  Serious: Yes (Other)
  Sender: FDA-Public Use
  Company Number: US-ABBVIE-5181675

PATIENT
  Age: 80 Year
  Sex: Female

DRUGS (1)
  1. RINVOQ [Suspect]
     Active Substance: UPADACITINIB
     Indication: Product used for unknown indication
     Route: 048
     Dates: start: 20210524

REACTIONS (4)
  - Surgery [Recovering/Resolving]
  - Infection [Unknown]
  - Thrombosis [Unknown]
  - Aneurysm [Unknown]

NARRATIVE: CASE EVENT DATE: 20230426
